FAERS Safety Report 4735695-6 (Version None)
Quarter: 2005Q3

REPORT INFORMATION
  Report Type: 
  Country: None (occurrence: None)
  Receive Date: 20050804
  Receipt Date: 20050722
  Transmission Date: 20060218
  Serious: Yes (Hospitalization, Other)
  Sender: FDA-Public Use
  Company Number: 2005061744

PATIENT
  Sex: Male
  Weight: 90 kg

DRUGS (7)
  1. CAMPTOSAR [Suspect]
     Indication: RHABDOMYOSARCOMA RECURRENT
     Dosage: 40 MG (40 MG FOR 5 DAYS), INTRAVENOUS
     Route: 042
     Dates: start: 20050328
  2. VINCRISTINE [Concomitant]
  3. ATROPINE [Concomitant]
  4. ATIVAN [Concomitant]
  5. PROMETHAZINE [Concomitant]
  6. ZANTAC [Concomitant]
  7. KYTRIL [Concomitant]

REACTIONS (6)
  - ANXIETY [None]
  - DIARRHOEA [None]
  - DISCOMFORT [None]
  - LOCAL SWELLING [None]
  - THROMBOSIS [None]
  - VENOUS THROMBOSIS [None]
